FAERS Safety Report 7550963-0 (Version None)
Quarter: 2011Q2

REPORT INFORMATION
  Report Type: 
  Country: None (occurrence: None)
  Receive Date: 20110616
  Receipt Date: 20110608
  Transmission Date: 20111010
  Serious: Yes (Hospitalization, Other)
  Sender: FDA-Public Use
  Company Number: CN-ASTELLAS-2011US002894

PATIENT
  Age: 63 Year
  Sex: Male

DRUGS (4)
  1. TARCEVA [Suspect]
     Indication: PANCREATIC CARCINOMA
     Dosage: 150 MG, UNKNOWN/D
     Route: 048
     Dates: start: 20101101, end: 20101101
  2. DEXAMETHASONE [Concomitant]
     Indication: PROPHYLAXIS
     Dosage: 5 MG, TOTAL DOSE
     Route: 065
     Dates: start: 20110603, end: 20110603
  3. RITUXAN [Suspect]
     Indication: DIFFUSE LARGE B-CELL LYMPHOMA
     Dosage: 100 MG, OTHER
     Route: 041
     Dates: start: 20110603, end: 20110603
  4. DIPHENHYDRAMINE HCL [Concomitant]
     Indication: PROPHYLAXIS
     Dosage: 50 MG, TOTAL DOSE
     Route: 065
     Dates: start: 20110603, end: 20110603

REACTIONS (9)
  - DISEASE RECURRENCE [None]
  - DIFFUSE LARGE B-CELL LYMPHOMA [None]
  - OXYGEN SATURATION DECREASED [None]
  - CHILLS [None]
  - HEART RATE INCREASED [None]
  - PYREXIA [None]
  - TACHYPNOEA [None]
  - CHEST DISCOMFORT [None]
  - BRONCHOSPASM [None]
